FAERS Safety Report 9248525 (Version 1)
Quarter: 2013Q1

REPORT INFORMATION
  Report Type: Spontaneous
  Country: US (occurrence: None)
  Receive Date: 20130305
  Receipt Date: 20130305
  Transmission Date: 20140127
  Serious: Yes (Other)
  Sender: FDA-Public Use
  Company Number: 163-21880-12091649 (0)

PATIENT
  Age: 55 Year
  Sex: Female
  Weight: 65.77 kg

DRUGS (5)
  1. REVLIMID [Suspect]
     Indication: PLASMA CELL MYELOMA
     Dosage: 5MG, 1 IN 2 D, PO
     Route: 048
     Dates: start: 20110211
  2. ADVIL COLD/SINUS (CO-ADVIL) [Concomitant]
  3. ASPIRIN (ACETYLSALICYLIC ACID) [Concomitant]
  4. NEURONTIN (GABAPENTIN) [Concomitant]
  5. VALTREX (VALACYCLOVIR HYDROCHLORIDE) [Concomitant]

REACTIONS (2)
  - Nasal congestion [None]
  - Cough [None]
